FAERS Safety Report 8031453-8 (Version None)
Quarter: 2012Q1

REPORT INFORMATION
  Report Type: 
  Country: None (occurrence: None)
  Receive Date: 20120109
  Receipt Date: 20100616
  Transmission Date: 20120608
  Serious: No
  Sender: FDA-Public Use
  Company Number: US-ENDO PHARMACEUTICALS INC.-PRED20120001

PATIENT
  Sex: Male
  Weight: 94.7 kg

DRUGS (5)
  1. MITOXANTRONE [Suspect]
     Indication: PROSTATE CANCER METASTATIC
     Dates: start: 20090730, end: 20090909
  2. IMC-1121B [Suspect]
     Indication: PROSTATE CANCER METASTATIC
     Dates: start: 20090730, end: 20091111
  3. ASPIRIN [Concomitant]
     Indication: PRODUCT USED FOR UNKNOWN INDICATION
  4. PREDNISONE TAB [Suspect]
     Indication: PROSTATE CANCER METASTATIC
     Dosage: UNKNOWN
     Route: 048
     Dates: start: 20090730
  5. LUPRON [Concomitant]
     Indication: PRODUCT USED FOR UNKNOWN INDICATION

REACTIONS (3)
  - MUSCULAR WEAKNESS [None]
  - ANAEMIA [None]
  - DYSPNOEA [None]
